FAERS Safety Report 8876461 (Version 1)
Quarter: 2012Q4

REPORT INFORMATION
  Report Type: 
  Country: US (occurrence: US)
  Receive Date: 20121031
  Receipt Date: 20121031
  Transmission Date: 20130627
  Serious: Yes (Hospitalization)
  Sender: FDA-Public Use
  Company Number: US-BAYER-2012-112935

PATIENT
  Age: 32 Year
  Sex: Female

DRUGS (3)
  1. YAZ [Suspect]
  2. FLUCONAZOLE [Concomitant]
     Dosage: 200 mg, UNK
     Route: 048
     Dates: start: 20090409
  3. MOTRIN [Concomitant]
     Indication: PAIN

REACTIONS (1)
  - Deep vein thrombosis [None]
